FAERS Safety Report 9896524 (Version 2)
Quarter: 2014Q1

REPORT INFORMATION
  Report Type: Spontaneous
  Country: US (occurrence: US)
  Receive Date: 20140213
  Receipt Date: 20140213
  Transmission Date: 20141002
  Serious: Yes (Other)
  Sender: FDA-Public Use
  Company Number: US-BRISTOL-MYERS SQUIBB COMPANY-18852269

PATIENT
  Age: 73 Year
  Sex: Female

DRUGS (1)
  1. ORENCIA [Suspect]
     Dosage: DATE OF LAST ADMIN:18APR2013.
     Route: 042

REACTIONS (3)
  - Kidney infection [Unknown]
  - Back pain [Unknown]
  - Cystitis [Unknown]
